FAERS Safety Report 24293178 (Version 1)
Quarter: 2024Q3

REPORT INFORMATION
  Report Type: Spontaneous
  Country: US (occurrence: None)
  Receive Date: 20240906
  Receipt Date: 20240906
  Transmission Date: 20241017
  Serious: No
  Sender: DOMPE FARMACEUTICI
  Company Number: US-FARMAPROD-202312-3583

PATIENT
  Sex: Female

DRUGS (8)
  1. OXERVATE [Suspect]
     Active Substance: CENEGERMIN-BKBJ
     Indication: Neurotrophic keratopathy
     Route: 047
     Dates: start: 20231102
  2. CEQUA [Concomitant]
     Active Substance: CYCLOSPORINE
     Dosage: DROPERETTE
  3. TOBRAMYCIN [Concomitant]
     Active Substance: TOBRAMYCIN\TOBRAMYCIN SULFATE
  4. WEGOVY [Concomitant]
     Active Substance: SEMAGLUTIDE
     Dosage: 0.25 MG/0.5 ML , PEN INJECTOR
     Route: 058
  5. ALEVE [Concomitant]
     Active Substance: NAPROXEN SODIUM
  6. XANAX [Concomitant]
     Active Substance: ALPRAZOLAM
  7. ESTRADIOL [Concomitant]
     Active Substance: ESTRADIOL
  8. METOPROLOL SUCCINATE [Concomitant]
     Active Substance: METOPROLOL SUCCINATE

REACTIONS (4)
  - Intentional product misuse [Unknown]
  - Drug ineffective [Unknown]
  - Disease progression [Unknown]
  - Foreign body sensation in eyes [Unknown]
